FAERS Safety Report 19882772 (Version 1)
Quarter: 2021Q3

REPORT INFORMATION
  Report Type: Spontaneous
  Country: AU (occurrence: AU)
  Receive Date: 20210924
  Receipt Date: 20210924
  Transmission Date: 20211014
  Serious: Yes (Other)
  Sender: FDA-Public Use
  Company Number: AU-ALLERGAN-2132929US

PATIENT
  Sex: Male

DRUGS (2)
  1. DEX UNK (DEXAMETHASONE) [Suspect]
     Active Substance: DEXAMETHASONE
     Indication: PRODUCT USED FOR UNKNOWN INDICATION
  2. KYPROLIS [Suspect]
     Active Substance: CARFILZOMIB
     Indication: PRODUCT USED FOR UNKNOWN INDICATION

REACTIONS (5)
  - Hypoaesthesia [Unknown]
  - Therapeutic product effect decreased [Unknown]
  - Plasma cell myeloma [Unknown]
  - Dyspnoea [Unknown]
  - Off label use [Unknown]
